FAERS Safety Report 4417976-9 (Version None)
Quarter: 2004Q2

REPORT INFORMATION
  Report Type: 
  Country: None (occurrence: None)
  Receive Date: 20040622
  Receipt Date: 20031208
  Transmission Date: 20050107
  Serious: Yes (Other)
  Sender: FDA-Public Use
  Company Number: 353608

PATIENT
  Age: 72 Year
  Sex: Male
  Weight: 90 kg

DRUGS (1)
  1. XELODA [Suspect]
     Dosage: 2000 MG 2 PER DAY ORAL
     Route: 048
     Dates: start: 20031021

REACTIONS (1)
  - DYSPHAGIA [None]
